FAERS Safety Report 7939716-9 (Version None)
Quarter: 2011Q4

REPORT INFORMATION
  Report Type: 
  Country: None (occurrence: None)
  Receive Date: 20111125
  Receipt Date: 20111118
  Transmission Date: 20120403
  Serious: Yes (Other)
  Sender: FDA-Public Use
  Company Number: PHHY2011CL101593

PATIENT
  Sex: Female

DRUGS (3)
  1. ZOLEDRONOC ACID [Suspect]
     Indication: OSTEOPOROSIS
     Dosage: 5 MG, UNK
     Route: 042
  2. ANTIHYPERTENSIVE DRUGS [Concomitant]
     Dosage: UNK UKN, UNK
  3. INSULIN [Concomitant]
     Dosage: UNK UKN, UNK

REACTIONS (1)
  - CEREBROVASCULAR ACCIDENT [None]
